FAERS Safety Report 11352485 (Version 1)
Quarter: 2015Q3

REPORT INFORMATION
  Report Type: Spontaneous
  Country: US (occurrence: US)
  Receive Date: 20150807
  Receipt Date: 20150807
  Transmission Date: 20151125
  Serious: No
  Sender: FDA-Public Use
  Company Number: US-JNJFOC-20150615177

PATIENT
  Sex: Female
  Weight: 86.18 kg

DRUGS (5)
  1. VITAMINS [Concomitant]
     Active Substance: VITAMINS
     Indication: GLUCOSE TOLERANCE IMPAIRED
     Route: 065
  2. BIOTIN [Concomitant]
     Active Substance: BIOTIN
     Indication: SUPPLEMENTATION THERAPY
     Dosage: TAKING TWO AND A COUPLE WEEKS STARTED TAKING 3, 5-6 MONTHS
     Route: 065
  3. VITAMINS [Concomitant]
     Active Substance: VITAMINS
     Indication: ROUTINE HEALTH MAINTENANCE
     Route: 065
  4. WOMENS ROGAINE UNSCENTED [Suspect]
     Active Substance: MINOXIDIL
     Route: 061
  5. WOMENS ROGAINE UNSCENTED [Suspect]
     Active Substance: MINOXIDIL
     Indication: ALOPECIA
     Dosage: A LITTLE BIT IN THE CAP
     Route: 061
     Dates: start: 201411

REACTIONS (4)
  - Drug ineffective [Unknown]
  - Alopecia [Unknown]
  - Application site pain [Not Recovered/Not Resolved]
  - Hair colour changes [Unknown]
